FAERS Safety Report 25412879 (Version 1)
Quarter: 2025Q2

REPORT INFORMATION
  Report Type: Spontaneous
  Country: US (occurrence: None)
  Receive Date: 20250606
  Receipt Date: 20250606
  Transmission Date: 20250716
  Serious: Yes (Hospitalization, Other)
  Sender: FDA-CTU
  Company Number: None

PATIENT
  Age: 74 Year
  Sex: Female

DRUGS (7)
  1. MYCOPHENOLATE MOFETIL [Suspect]
     Active Substance: MYCOPHENOLATE MOFETIL
     Indication: Pulmonary sarcoidosis
     Dosage: OTHER QUANTITY : 3 TABLET(S);?FREQUENCY : TWICE A DAY;?
     Route: 048
     Dates: start: 20000601, end: 20250427
  2. LOSARTAN [Concomitant]
     Active Substance: LOSARTAN
  3. POTASSIUM [Concomitant]
     Active Substance: POTASSIUM
  4. ACYCLOVIR [Concomitant]
     Active Substance: ACYCLOVIR
  5. VITAMIN B [Concomitant]
     Active Substance: VITAMIN B
  6. VITAMIN C [Concomitant]
     Active Substance: ASCORBIC ACID
  7. VITAMIN D3 [Concomitant]
     Active Substance: CHOLECALCIFEROL

REACTIONS (5)
  - Abscess jaw [None]
  - Pneumonia [None]
  - Renal cancer [None]
  - Tooth fracture [None]
  - Mouth haemorrhage [None]

NARRATIVE: CASE EVENT DATE: 20240702
